FAERS Safety Report 6201517-X (Version None)
Quarter: 2009Q2

REPORT INFORMATION
  Report Type: 
  Country: None (occurrence: None)
  Receive Date: 20090526
  Receipt Date: 20090521
  Transmission Date: 20091009
  Serious: No
  Sender: FDA-Public Use
  Company Number: GB-ASTRAZENECA-2009GB00781

PATIENT
  Age: 18404 Day
  Sex: Male

DRUGS (4)
  1. CRESTOR [Suspect]
     Indication: BLOOD CHOLESTEROL INCREASED
     Route: 048
     Dates: start: 20050101, end: 20090101
  2. CRESTOR [Suspect]
     Route: 048
     Dates: start: 20090101
  3. ZERTEK [Concomitant]
  4. FISH OIL [Concomitant]

REACTIONS (2)
  - ACUTE GENERALISED EXANTHEMATOUS PUSTULOSIS [None]
  - COUGH [None]
